FAERS Safety Report 7040091-5 (Version None)
Quarter: 2010Q4

REPORT INFORMATION
  Report Type: 
  Country: None (occurrence: None)
  Receive Date: 20101012
  Receipt Date: 20100930
  Transmission Date: 20110411
  Serious: Yes (Hospitalization)
  Sender: FDA-Public Use
  Company Number: PHHO2010FR14875

PATIENT
  Sex: Male

DRUGS (7)
  1. AFINITOR [Suspect]
     Indication: NON-SMALL CELL LUNG CANCER
     Dosage: UNKNOWN
     Route: 048
     Dates: start: 20100504, end: 20100719
  2. RADIATION THERAPY [Suspect]
     Indication: NON-SMALL CELL LUNG CANCER
     Dosage: UNKNOWN
     Dates: start: 20100512, end: 20100630
  3. NAVELBINE [Suspect]
  4. CISPLATIN [Suspect]
  5. ZOFRAN [Concomitant]
  6. KYTRIL [Concomitant]
  7. PRIMPERAN [Concomitant]

REACTIONS (5)
  - COUGH [None]
  - DYSPNOEA [None]
  - LUNG DISORDER [None]
  - PULMONARY EMBOLISM [None]
  - PYREXIA [None]
